FAERS Safety Report 6371904-8 (Version None)
Quarter: 2009Q3

REPORT INFORMATION
  Report Type: 
  Country: None (occurrence: None)
  Receive Date: 20090918
  Receipt Date: 20090918
  Transmission Date: 20100115
  Serious: Yes (Other)
  Sender: FDA-Public Use
  Company Number: None

PATIENT
  Age: 74 Year
  Sex: Male
  Weight: 81.6475 kg

DRUGS (2)
  1. PANTOPRAZOLE SODIUM [Suspect]
     Indication: ARTHRALGIA
     Dosage: 1 TABLET AT BEDTIME PO
     Route: 048
     Dates: start: 20090504, end: 20090604
  2. PANTOPRAZOLE SODIUM [Suspect]
     Indication: ARTHROPATHY
     Dosage: 1 TABLET AT BEDTIME PO
     Route: 048
     Dates: start: 20090504, end: 20090604

REACTIONS (6)
  - ARTHRALGIA [None]
  - ARTHROPATHY [None]
  - ASTHENIA [None]
  - DYSSTASIA [None]
  - GAIT DISTURBANCE [None]
  - HYPERCHLORHYDRIA [None]
